FAERS Safety Report 6742638-2 (Version None)
Quarter: 2010Q2

REPORT INFORMATION
  Report Type: 
  Country: None (occurrence: None)
  Receive Date: 20100526
  Receipt Date: 20100521
  Transmission Date: 20101027
  Serious: Yes (Hospitalization)
  Sender: FDA-Public Use
  Company Number: FR-MERCK-1005FRA00085

PATIENT
  Age: 81 Year
  Sex: Female

DRUGS (7)
  1. PRIMAXIN [Suspect]
     Indication: SEPSIS
     Route: 042
     Dates: start: 20091125, end: 20091215
  2. PRIMAXIN [Suspect]
     Route: 042
     Dates: start: 20091216, end: 20091230
  3. DOLIPRANE [Concomitant]
     Indication: PAIN
     Route: 048
  4. CIPROFLOXACIN HYDROCHLORIDE [Suspect]
     Indication: SEPSIS
     Route: 048
     Dates: start: 20091125
  5. LOVENOX [Concomitant]
     Indication: PROPHYLAXIS
     Route: 058
     Dates: start: 20091001
  6. OMEPRAZOLE [Concomitant]
     Indication: PROPHYLAXIS AGAINST GASTROINTESTINAL ULCER
     Route: 048
  7. CONTRAMAL [Concomitant]
     Indication: PAIN
     Route: 048

REACTIONS (1)
  - PARTIAL SEIZURES [None]
